FAERS Safety Report 7331442-2 (Version None)
Quarter: 2011Q1

REPORT INFORMATION
  Report Type: 
  Country: None (occurrence: None)
  Receive Date: 20110228
  Receipt Date: 20110228
  Transmission Date: 20110831
  Serious: No
  Sender: FDA-Public Use
  Company Number: None

PATIENT
  Age: 58 Year
  Sex: Female

DRUGS (2)
  1. BUPROPION XL 300MG 1 ADAY ORAL [Suspect]
     Dosage: 300MG 1 A DAY ORAL
     Route: 048
     Dates: start: 20090101
  2. BUDEPRION XL [Suspect]
     Dosage: 300MG 1 A DAY ORAL
     Route: 048
     Dates: start: 20090101

REACTIONS (5)
  - DRUG INEFFECTIVE [None]
  - CONDITION AGGRAVATED [None]
  - ANXIETY [None]
  - DISTURBANCE IN ATTENTION [None]
  - DEPRESSION [None]
